FAERS Safety Report 24037707 (Version 1)
Quarter: 2024Q3

REPORT INFORMATION
  Report Type: Report from Study
  Country: US (occurrence: US)
  Receive Date: 20240702
  Receipt Date: 20240702
  Transmission Date: 20241016
  Serious: No
  Sender: RANBAXY
  Company Number: US-SUN PHARMACEUTICAL INDUSTRIES LTD-2020R1-263130

PATIENT
  Age: 13 Year
  Sex: Female

DRUGS (1)
  1. ABSORICA [Suspect]
     Active Substance: ISOTRETINOIN
     Indication: Acne
     Dosage: UNK, DAILY
     Route: 048
     Dates: start: 20200622, end: 202009

REACTIONS (5)
  - Arthralgia [Unknown]
  - Dyspnoea [Unknown]
  - Mood swings [Unknown]
  - Weight increased [Unknown]
  - Product administration interrupted [Unknown]

NARRATIVE: CASE EVENT DATE: 20200901
